FAERS Safety Report 23739328 (Version 1)
Quarter: 2024Q2

REPORT INFORMATION
  Report Type: Report from Study
  Country: US (occurrence: US)
  Receive Date: 20240413
  Receipt Date: 20240413
  Transmission Date: 20240716
  Serious: Yes (Hospitalization, Other)
  Sender: FDA-Public Use
  Company Number: US-ABBVIE-5712280

PATIENT
  Age: 82 Year
  Sex: Male
  Weight: 50 kg

DRUGS (1)
  1. NAMZARIC [Suspect]
     Active Substance: DONEPEZIL HYDROCHLORIDE\MEMANTINE HYDROCHLORIDE
     Indication: Memory impairment
     Dosage: FORM STRENGTH: 7MG AND 10MG CAP
     Route: 048

REACTIONS (3)
  - Femur fracture [Recovered/Resolved]
  - COVID-19 pneumonia [Recovered/Resolved]
  - Fall [Recovered/Resolved]

NARRATIVE: CASE EVENT DATE: 20231226
